FAERS Safety Report 14668409 (Version 1)
Quarter: 2018Q1

REPORT INFORMATION
  Report Type: Spontaneous
  Country: CA (occurrence: CA)
  Receive Date: 20180322
  Receipt Date: 20180322
  Transmission Date: 20180509
  Serious: Yes (Disabling, Other)
  Sender: FDA-Public Use
  Company Number: CA-BAYER-2018-051600

PATIENT
  Age: 25 Year
  Sex: Female
  Weight: 61.22 kg

DRUGS (2)
  1. MIRENA [Suspect]
     Active Substance: LEVONORGESTREL
     Indication: CONTRACEPTION
  2. MIRENA [Suspect]
     Active Substance: LEVONORGESTREL
     Indication: CONTRACEPTION
     Dosage: 20 MCG/24HR, CONT
     Route: 015

REACTIONS (11)
  - Depression [Unknown]
  - Nausea [Unknown]
  - Vertigo [Unknown]
  - Amnesia [Unknown]
  - Anxiety [Unknown]
  - Panic attack [Unknown]
  - Speech disorder [Unknown]
  - Loss of libido [Unknown]
  - Visual impairment [Unknown]
  - Fatigue [Unknown]
  - Administration site infection [Unknown]
